FAERS Safety Report 15475606 (Version 2)
Quarter: 2018Q4

REPORT INFORMATION
  Report Type: Spontaneous
  Country: TR (occurrence: TR)
  Receive Date: 20181008
  Receipt Date: 20181016
  Transmission Date: 20190205
  Serious: Yes (Other)
  Sender: FDA-Public Use
  Company Number: TR-ALLERGAN-1847961US

PATIENT
  Age: 67 Year
  Sex: Male

DRUGS (1)
  1. OZURDEX [Suspect]
     Active Substance: DEXAMETHASONE
     Indication: MACULAR OEDEMA
     Dosage: 0.7 MG, SINGLE
     Route: 031

REACTIONS (5)
  - Cataract subcapsular [Recovered/Resolved]
  - Intraocular pressure increased [Recovered/Resolved]
  - Product administered at inappropriate site [Unknown]
  - Cataract cortical [Recovered/Resolved]
  - Complication of device insertion [Recovered/Resolved]
